FAERS Safety Report 13928215 (Version 1)
Quarter: 2017Q3

REPORT INFORMATION
  Report Type: Report from Study
  Country: None (occurrence: BR)
  Receive Date: 20170901
  Receipt Date: 20170901
  Transmission Date: 20171127
  Serious: Yes (Other)
  Sender: FDA-Public Use
  Company Number: BR-ABBVIE-17K-020-2083787-00

PATIENT
  Age: 48 Year
  Sex: Female
  Weight: 67 kg

DRUGS (1)
  1. HUMIRA [Suspect]
     Active Substance: ADALIMUMAB
     Indication: PSORIATIC ARTHROPATHY
     Route: 058
     Dates: start: 20160919

REACTIONS (12)
  - Rhinitis [Not Recovered/Not Resolved]
  - Immunodeficiency [Unknown]
  - Labyrinthitis [Not Recovered/Not Resolved]
  - Pneumonia [Recovered/Resolved]
  - Pharyngitis [Recovered/Resolved]
  - Ear pain [Recovered/Resolved]
  - Uterine leiomyoma [Not Recovered/Not Resolved]
  - Dysphonia [Recovered/Resolved]
  - Infection [Unknown]
  - Tinnitus [Not Recovered/Not Resolved]
  - Tonsillitis [Recovered/Resolved]
  - Cystitis [Recovered/Resolved]

NARRATIVE: CASE EVENT DATE: 2016
